FAERS Safety Report 19928090 (Version 1)
Quarter: 2021Q4

REPORT INFORMATION
  Report Type: Spontaneous
  Country: LT (occurrence: LT)
  Receive Date: 20211007
  Receipt Date: 20211007
  Transmission Date: 20220303
  Serious: Yes (Other)
  Sender: FDA-Public Use
  Company Number: LT-SUN PHARMACEUTICAL INDUSTRIES LTD-2021RR-313566

PATIENT
  Age: 66 Year
  Sex: Male

DRUGS (2)
  1. ATORVASTATIN [Suspect]
     Active Substance: ATORVASTATIN
     Indication: Myocardial infarction
     Dosage: 80 MILLIGRAM, UNK
     Route: 065
  2. PREDNISOLONE [Suspect]
     Active Substance: PREDNISOLONE
     Indication: Immune-mediated myositis
     Dosage: 20 MILLIGRAM, UNK
     Route: 065

REACTIONS (2)
  - Immune-mediated myositis [Unknown]
  - Therapeutic product effect incomplete [Unknown]
